FAERS Safety Report 24876627 (Version 1)
Quarter: 2025Q1

REPORT INFORMATION
  Report Type: Report from Study
  Country: BR (occurrence: BR)
  Receive Date: 20250123
  Receipt Date: 20250123
  Transmission Date: 20250409
  Serious: Yes (Hospitalization, Other)
  Sender: BIOVITRUM
  Company Number: BR-AstraZeneca-CH-00786354A

PATIENT
  Age: 35 Week
  Sex: Female
  Weight: 3.5 kg

DRUGS (1)
  1. PALIVIZUMAB [Suspect]
     Active Substance: PALIVIZUMAB
     Indication: Respiratory syncytial virus infection
     Route: 065
     Dates: end: 2024

REACTIONS (5)
  - Bronchiolitis [Unknown]
  - Cyanosis [Unknown]
  - Cough [Unknown]
  - Apnoea [Unknown]
  - Off label use [Unknown]
